FAERS Safety Report 23456743 (Version 1)
Quarter: 2024Q1

REPORT INFORMATION
  Report Type: Spontaneous
  Country: FR (occurrence: FR)
  Receive Date: 20240130
  Receipt Date: 20240130
  Transmission Date: 20240410
  Serious: Yes (Hospitalization)
  Sender: FDA-Public Use
  Company Number: None

PATIENT
  Age: 34 Year
  Sex: Male
  Weight: 105 kg

DRUGS (4)
  1. VALIUM [Suspect]
     Active Substance: DIAZEPAM
     Indication: Schizophrenia
     Dosage: 1-1-2, VALIUM 10 MG, SCORED TABLET
     Route: 050
  2. ABILIFY [Suspect]
     Active Substance: ARIPIPRAZOLE
     Indication: Schizophrenia
     Dosage: 1 INJECTION EVERY 20 DAYS
     Route: 050
  3. CYAMEMAZINE TARTRATE [Suspect]
     Active Substance: CYAMEMAZINE TARTRATE
     Indication: Schizophrenia
     Dosage: 0.5-0.5-1
     Route: 050
  4. VICTOZA [Suspect]
     Active Substance: LIRAGLUTIDE
     Indication: Diabetes mellitus
     Dosage: STRENGTH - 6MG/ML
     Route: 050

REACTIONS (1)
  - Pancreatitis acute [Not Recovered/Not Resolved]

NARRATIVE: CASE EVENT DATE: 20240105
